FAERS Safety Report 7088599-0 (Version None)
Quarter: 2010Q4

REPORT INFORMATION
  Report Type: 
  Country: None (occurrence: None)
  Receive Date: 20101108
  Receipt Date: 20101101
  Transmission Date: 20110411
  Serious: Yes (Death)
  Sender: FDA-Public Use
  Company Number: IN-SANOFI-AVENTIS-2010SA066957

PATIENT
  Age: 50 Year
  Sex: Male
  Weight: 50 kg

DRUGS (10)
  1. ENOXAPARIN SODIUM [Suspect]
     Route: 058
     Dates: start: 20100317, end: 20100504
  2. DOCETAXEL [Concomitant]
     Route: 041
     Dates: start: 20100317, end: 20100317
  3. DOCETAXEL [Concomitant]
     Route: 041
     Dates: start: 20100408, end: 20100408
  4. DOCETAXEL [Concomitant]
     Route: 041
     Dates: start: 20100501, end: 20100501
  5. CISPLATIN [Concomitant]
     Route: 041
     Dates: start: 20100317, end: 20100317
  6. CISPLATIN [Concomitant]
     Route: 041
     Dates: start: 20100408, end: 20100408
  7. CISPLATIN [Concomitant]
     Route: 041
     Dates: start: 20100501, end: 20100501
  8. DICLOFENAC SODIUM [Concomitant]
     Indication: ABDOMINAL PAIN
     Route: 048
     Dates: start: 20100430
  9. RABEPRAZOLE SODIUM [Concomitant]
     Route: 048
     Dates: start: 20100318
  10. DOMPERIDONE [Concomitant]
     Route: 048
     Dates: start: 20100318

REACTIONS (1)
  - DEATH [None]
